FAERS Safety Report 6279188-6 (Version None)
Quarter: 2009Q3

REPORT INFORMATION
  Report Type: 
  Country: None (occurrence: None)
  Receive Date: 20090723
  Receipt Date: 20080814
  Transmission Date: 20100115
  Serious: No
  Sender: FDA-Public Use
  Company Number: US-AMGEN-KDL301969

PATIENT
  Age: 78 Year
  Sex: Male

DRUGS (2)
  1. PROCRIT [Suspect]
     Indication: PRE-EXISTING DISEASE
     Dates: start: 20070101
  2. ISONIAZID [Concomitant]
     Dates: start: 20060101

REACTIONS (1)
  - RASH PUSTULAR [None]
